FAERS Safety Report 21841960 (Version 1)
Quarter: 2023Q1

REPORT INFORMATION
  Report Type: Spontaneous
  Country: US (occurrence: US)
  Receive Date: 20230110
  Receipt Date: 20230110
  Transmission Date: 20230417
  Serious: Yes (Death, Hospitalization, Other)
  Sender: FDA-Public Use
  Company Number: US-SA-2023SA004831

PATIENT
  Age: 76 Year
  Sex: Female

DRUGS (18)
  1. CLOPIDOGREL BISULFATE [Suspect]
     Active Substance: CLOPIDOGREL BISULFATE
  2. ACETAMINOPHEN [Suspect]
     Active Substance: ACETAMINOPHEN
     Dosage: 650 MG, 1-2 TIMES A DAY
  3. ASPIRIN [Concomitant]
     Active Substance: ASPIRIN
  4. DIPHENHYDRAMINE [Concomitant]
     Active Substance: DIPHENHYDRAMINE
  5. DRONEDARONE [Concomitant]
     Active Substance: DRONEDARONE
  6. FERROUS SULFATE [Concomitant]
     Active Substance: FERROUS SULFATE
  7. ISOSORBIDE MONONITRATE [Concomitant]
     Active Substance: ISOSORBIDE MONONITRATE
  8. LEVOTHYROXINE [Concomitant]
     Active Substance: LEVOTHYROXINE
  9. LISINOPRIL [Concomitant]
     Active Substance: LISINOPRIL
  10. LUBIPROSTONE [Concomitant]
     Active Substance: LUBIPROSTONE
  11. MESALAMINE [Concomitant]
     Active Substance: MESALAMINE
  12. METOPROLOL [Concomitant]
     Active Substance: METOPROLOL
  13. NITROGLYCERIN [Concomitant]
     Active Substance: NITROGLYCERIN
  14. FISH OIL [Concomitant]
     Active Substance: FISH OIL
  15. OMEPRAZOLE [Concomitant]
     Active Substance: OMEPRAZOLE
  16. ONDANSETRON [Concomitant]
     Active Substance: ONDANSETRON
  17. ROSUVASTATIN [Concomitant]
     Active Substance: ROSUVASTATIN
  18. SUCRALFATE [Concomitant]
     Active Substance: SUCRALFATE

REACTIONS (21)
  - Acute hepatic failure [Fatal]
  - Drug interaction [Fatal]
  - Hepatotoxicity [Fatal]
  - Abdominal pain upper [Fatal]
  - Nausea [Fatal]
  - Vomiting [Fatal]
  - Abdominal tenderness [Fatal]
  - Lymphadenopathy mediastinal [Fatal]
  - Hilar lymphadenopathy [Fatal]
  - Fatigue [Fatal]
  - Decreased appetite [Fatal]
  - Abdominal distension [Fatal]
  - Restlessness [Fatal]
  - Pallor [Fatal]
  - Hypertransaminasaemia [Fatal]
  - Hypoglycaemia [Fatal]
  - Atrial fibrillation [Recovered/Resolved]
  - Tachycardia [Recovered/Resolved]
  - Hypotension [Recovered/Resolved]
  - Oesophageal candidiasis [Unknown]
  - Duodenitis [Recovering/Resolving]
